FAERS Safety Report 15259834 (Version 4)
Quarter: 2018Q4

REPORT INFORMATION
  Report Type: Spontaneous
  Country: US (occurrence: US)
  Receive Date: 20180809
  Receipt Date: 20181228
  Transmission Date: 20190204
  Serious: Yes (Other)
  Sender: FDA-Public Use
  Company Number: US-SA-2018SA211839

PATIENT
  Age: 32 Year
  Sex: Female
  Weight: 85 kg

DRUGS (4)
  1. TAXOTERE [Suspect]
     Active Substance: DOCETAXEL
     Indication: BREAST CANCER FEMALE
     Dosage: EVERY 2 WEEKS
     Route: 042
     Dates: start: 20101101, end: 20101101
  2. TAXOTERE [Suspect]
     Active Substance: DOCETAXEL
     Dosage: EVERY 2 WEEKS
     Route: 042
     Dates: start: 20110228, end: 20110228
  3. ADRIAMYCIN [Concomitant]
     Active Substance: DOXORUBICIN HYDROCHLORIDE
     Dosage: UNK
     Route: 065
  4. NEOSAR [Concomitant]
     Active Substance: CYCLOPHOSPHAMIDE
     Dosage: UNK
     Route: 065

REACTIONS (4)
  - Alopecia [Recovering/Resolving]
  - Psychological trauma [Unknown]
  - Emotional distress [Unknown]
  - Discomfort [Unknown]

NARRATIVE: CASE EVENT DATE: 201108
